FAERS Safety Report 5000342-5 (Version None)
Quarter: 2006Q2

REPORT INFORMATION
  Report Type: 
  Country: None (occurrence: None)
  Receive Date: 20060511
  Receipt Date: 20060504
  Transmission Date: 20061013
  Serious: Yes (Hospitalization)
  Sender: FDA-Public Use
  Company Number: US-MERCK-0605USA01067

PATIENT
  Age: 45 Year
  Sex: Female
  Weight: 80 kg

DRUGS (18)
  1. VIOXX [Suspect]
     Indication: ARTHRITIS
     Route: 048
     Dates: start: 20020501, end: 20030801
  2. FOLIC ACID [Concomitant]
     Route: 065
  3. TAMOXIFEN CITRATE [Concomitant]
     Route: 065
  4. LIPITOR [Concomitant]
     Route: 065
  5. METOPROLOL [Concomitant]
     Route: 065
  6. ZOLOFT [Concomitant]
     Route: 065
  7. WELLBUTRIN [Concomitant]
     Route: 065
  8. POTASSIUM (UNSPECIFIED) [Concomitant]
     Route: 065
  9. ALTACE [Concomitant]
     Route: 065
  10. HYDROCHLOROTHIAZIDE TABLETS (USP 23) [Concomitant]
     Route: 065
  11. PLAVIX [Concomitant]
     Route: 065
  12. BELLAMINE S [Concomitant]
     Route: 065
  13. DIPHENOXYLATE [Concomitant]
     Route: 065
  14. SMZ-TMP [Concomitant]
     Route: 065
  15. CIPRO [Concomitant]
     Route: 065
  16. ECOTRIN [Concomitant]
     Route: 065
  17. ZOFRAN [Concomitant]
     Route: 065
  18. PROCHLORPERAZINE [Concomitant]
     Route: 065

REACTIONS (1)
  - MYOCARDIAL INFARCTION [None]
